FAERS Safety Report 18763757 (Version 4)
Quarter: 2021Q1

REPORT INFORMATION
  Report Type: Report from Study
  Country: IE (occurrence: IE)
  Receive Date: 20210120
  Receipt Date: 20210309
  Transmission Date: 20210419
  Serious: Yes (Other)
  Sender: FDA-Public Use
  Company Number: IE-SHIRE-IE202030432

PATIENT
  Age: 11 Year
  Sex: Male

DRUGS (20)
  1. IDURSULFASE [Suspect]
     Active Substance: IDURSULFASE
     Dosage: 30 GRAM, 1/WEEK
     Route: 042
     Dates: start: 20111028
  2. SALBUTAMOL [Concomitant]
     Active Substance: ALBUTEROL
     Dosage: 2.5 MILLIGRAM, QD
     Route: 050
  3. EPIDUO [Concomitant]
     Active Substance: ADAPALENE\BENZOYL PEROXIDE
     Dosage: UNK, QD
     Route: 050
  4. IDURSULFASE [Suspect]
     Active Substance: IDURSULFASE
     Dosage: 30 GRAM, 1/WEEK
     Route: 042
     Dates: start: 20111028
  5. IDURSULFASE [Suspect]
     Active Substance: IDURSULFASE
     Indication: MUCOPOLYSACCHARIDOSIS II
     Dosage: 24 GRAM, 1/WEEK
     Route: 042
     Dates: start: 20111008
  6. EXPUTEX [Concomitant]
     Dosage: 5 MILLILITER
     Route: 050
  7. BUDESONIDE. [Concomitant]
     Active Substance: BUDESONIDE
     Dosage: 0.5 MILLIGRAM, QD
     Route: 050
  8. PREDNESOL [Concomitant]
     Dosage: 30 MILLIGRAM, QD
     Route: 050
  9. MONOTRIM [Concomitant]
     Active Substance: TRIMETHOPRIM
     Dosage: 10 MILLILITER, BID
     Route: 050
  10. ZOFRAN [Concomitant]
     Active Substance: ONDANSETRON HYDROCHLORIDE
     Dosage: 4 MILLIGRAM
     Route: 050
  11. SINGULAIR [Concomitant]
     Active Substance: MONTELUKAST SODIUM
     Dosage: 10 MILLIGRAM
     Route: 050
  12. MELATONIN [Concomitant]
     Active Substance: MELATONIN
     Dosage: 10 MILLIGRAM, QD
     Route: 050
  13. IDURSULFASE [Suspect]
     Active Substance: IDURSULFASE
     Dosage: 24 GRAM, 1/WEEK
     Route: 042
     Dates: start: 20111028
  14. HEPARIN SODIUM. [Concomitant]
     Active Substance: HEPARIN SODIUM
     Dosage: 10 INTERNATIONAL UNIT, 1/WEEK
     Route: 050
  15. ZIRTEK [Concomitant]
     Active Substance: CETIRIZINE HYDROCHLORIDE
     Dosage: 10 MILLIGRAM
     Route: 061
  16. SALINE [Concomitant]
     Active Substance: SODIUM CHLORIDE
     Dosage: 2 MILLILITER
     Route: 050
  17. DIFFERIN [Concomitant]
     Active Substance: ADAPALENE
     Dosage: 1 MILLIGRAM, QD
     Route: 050
  18. EMLA [Concomitant]
     Active Substance: LIDOCAINE\PRILOCAINE
     Dosage: UNK
     Route: 061
  19. MOVICOL [Concomitant]
     Active Substance: POLYETHYLENE GLYCOL 3350\POTASSIUM CHLORIDE\SODIUM BICARBONATE\SODIUM CHLORIDE
     Dosage: 1 INTERNATIONAL UNIT, BID
     Route: 050
  20. KLACID [CLARITHROMYCIN] [Concomitant]
     Active Substance: CLARITHROMYCIN
     Dosage: 500 MILLIGRAM, BID
     Route: 050

REACTIONS (3)
  - Tibia fracture [Recovered/Resolved]
  - Upper respiratory tract infection [Unknown]
  - Catheter management [Unknown]

NARRATIVE: CASE EVENT DATE: 20200904
